FAERS Safety Report 7266397-2 (Version None)
Quarter: 2011Q1

REPORT INFORMATION
  Report Type: 
  Country: None (occurrence: None)
  Receive Date: 20110131
  Receipt Date: 20110125
  Transmission Date: 20110831
  Serious: Yes (Other)
  Sender: FDA-Public Use
  Company Number: NL-PFIZER INC-2011018143

PATIENT
  Age: 67 Year
  Weight: 75 kg

DRUGS (4)
  1. METOPROLOL [Concomitant]
     Dosage: 50 MG, 1X/DAY
     Dates: start: 20070101
  2. MARCOUMAR [Concomitant]
     Dosage: UNK
     Dates: start: 20050501
  3. LANOXIN [Concomitant]
     Dosage: 0.25 UG, 1X/DAY
     Dates: start: 20050501
  4. LIPITOR [Suspect]
     Indication: ARRHYTHMIA
     Dosage: UNK, 1X/DAY
     Dates: start: 20050101

REACTIONS (1)
  - MUSCLE RUPTURE [None]
